FAERS Safety Report 6155775-0 (Version None)
Quarter: 2009Q2

REPORT INFORMATION
  Report Type: 
  Country: None (occurrence: None)
  Receive Date: 20090413
  Receipt Date: 20090330
  Transmission Date: 20091009
  Serious: Yes (Other)
  Sender: FDA-Public Use
  Company Number: 2009-194151-NL

PATIENT
  Sex: Female
  Weight: 59 kg

DRUGS (2)
  1. IMPLANON [Suspect]
     Dates: start: 20071201
  2. LAMICTAL [Suspect]
     Dosage: 1 DF BID ORAL
     Route: 048

REACTIONS (2)
  - BIPOLAR DISORDER [None]
  - VAGINAL HAEMORRHAGE [None]
